FAERS Safety Report 13631187 (Version 1)
Quarter: 2017Q2

REPORT INFORMATION
  Report Type: Spontaneous
  Country: US (occurrence: US)
  Receive Date: 20170531
  Receipt Date: 20170531
  Transmission Date: 20170830
  Serious: No
  Sender: FDA-Public Use
  Company Number: US-ASTELLAS-1359067

PATIENT
  Age: 79 Year
  Sex: Female

DRUGS (2)
  1. TARCEVA [Suspect]
     Active Substance: ERLOTINIB HYDROCHLORIDE
     Indication: PRODUCT USED FOR UNKNOWN INDICATION
     Dosage: DAILY
     Route: 048
     Dates: start: 20140131
  2. TARCEVA [Suspect]
     Active Substance: ERLOTINIB HYDROCHLORIDE
     Dosage: DAILY
     Route: 048
     Dates: start: 20140228

REACTIONS (7)
  - Fatigue [Unknown]
  - Pain [Unknown]
  - Peripheral swelling [Unknown]
  - Arthralgia [Unknown]
  - Pruritus [Not Recovered/Not Resolved]
  - Joint swelling [Unknown]
  - Pain in jaw [Not Recovered/Not Resolved]

NARRATIVE: CASE EVENT DATE: 20140425
